FAERS Safety Report 5702966-6 (Version None)
Quarter: 2008Q2

REPORT INFORMATION
  Report Type: 
  Country: None (occurrence: None)
  Receive Date: 20080408
  Receipt Date: 20080327
  Transmission Date: 20081010
  Serious: Yes (Other)
  Sender: FDA-Public Use
  Company Number: 232956J08USA

PATIENT
  Age: 46 Year
  Sex: Male

DRUGS (5)
  1. REBIF [Suspect]
     Indication: MULTIPLE SCLEROSIS
     Dosage: 44 MCG, 3 IN 1 WEEKS, SUBCUTANEOUS
     Route: 058
     Dates: start: 20030716, end: 20080201
  2. REBIF [Suspect]
     Indication: MULTIPLE SCLEROSIS
     Dosage: 44 MCG, 3 IN 1 WEEKS, SUBCUTANEOUS
     Route: 058
     Dates: start: 20080101
  3. MULTIVITAMIN [Concomitant]
  4. ACTOS [Concomitant]
  5. LIPITOR [Concomitant]

REACTIONS (8)
  - DRUG DOSE OMISSION [None]
  - EAR INFECTION [None]
  - MALAISE [None]
  - MULTIPLE MYELOMA [None]
  - MYOCARDIAL INFARCTION [None]
  - NAUSEA [None]
  - RASH PRURITIC [None]
  - STEM CELL TRANSPLANT [None]
